FAERS Safety Report 4347834-X (Version None)
Quarter: 2004Q2

REPORT INFORMATION
  Report Type: 
  Country: None (occurrence: None)
  Receive Date: 20040422
  Receipt Date: 20040407
  Transmission Date: 20050107
  Serious: Yes (Hospitalization)
  Sender: FDA-Public Use
  Company Number: US_0404102146

PATIENT
  Sex: Female

DRUGS (2)
  1. HUMULIN-HUMAN INSULIN (RDNA) : 30% REGULAR, 70% NPH(H [Suspect]
     Indication: DIABETES MELLITUS
     Dates: start: 20000101
  2. HUMULIN R [Suspect]
     Indication: DIABETES MELLITUS
     Dates: start: 20000101

REACTIONS (2)
  - BENIGN COLONIC NEOPLASM [None]
  - DIVERTICULUM [None]
